FAERS Safety Report 7316433-X (Version None)
Quarter: 2011Q1

REPORT INFORMATION
  Report Type: 
  Country: None (occurrence: None)
  Receive Date: 20110225
  Receipt Date: 20110216
  Transmission Date: 20110831
  Serious: Yes (Disabling, Other)
  Sender: FDA-Public Use
  Company Number: US-MERCK-1008USA04029

PATIENT
  Age: 40 Year
  Sex: Female
  Weight: 64 kg

DRUGS (9)
  1. FOSAMAX [Suspect]
     Route: 048
     Dates: start: 20000501, end: 20050501
  2. FOSAMAX [Suspect]
     Indication: OSTEOPOROSIS
     Route: 048
     Dates: start: 20000401, end: 20010401
  3. FOSAMAX [Suspect]
     Route: 048
     Dates: start: 20000517
  4. FOSAMAX [Suspect]
     Route: 048
     Dates: start: 20071016, end: 20080820
  5. BONIVA [Suspect]
     Route: 065
     Dates: start: 20080820
  6. FOSAMAX [Suspect]
     Indication: OSTEOPENIA
     Route: 048
     Dates: start: 20000401, end: 20010401
  7. FOSAMAX [Suspect]
     Route: 048
     Dates: start: 20071016, end: 20080820
  8. FOSAMAX [Suspect]
     Route: 048
     Dates: start: 20000517
  9. FOSAMAX [Suspect]
     Route: 048
     Dates: start: 20000501, end: 20050501

REACTIONS (64)
  - HOT FLUSH [None]
  - DYSPHAGIA [None]
  - ABDOMINAL PAIN UPPER [None]
  - NAUSEA [None]
  - PYELONEPHRITIS [None]
  - MELANOCYTIC NAEVUS [None]
  - OSTEONECROSIS OF JAW [None]
  - UTERINE POLYP [None]
  - TREMOR [None]
  - GASTROOESOPHAGEAL REFLUX DISEASE [None]
  - INTERVERTEBRAL DISC PROTRUSION [None]
  - PELVIC FRACTURE [None]
  - ATROPHY [None]
  - TOBACCO USER [None]
  - PNEUMONIA [None]
  - VOMITING [None]
  - VITAMIN D DEFICIENCY [None]
  - PYREXIA [None]
  - HIP FRACTURE [None]
  - BREAST MASS [None]
  - DEVICE FAILURE [None]
  - VISION BLURRED [None]
  - MENTAL IMPAIRMENT [None]
  - FALL [None]
  - FAMILY STRESS [None]
  - INAPPROPRIATE SCHEDULE OF DRUG ADMINISTRATION [None]
  - NIGHT SWEATS [None]
  - SWELLING [None]
  - ROAD TRAFFIC ACCIDENT [None]
  - MENOPAUSE [None]
  - MALIGNANT HYPERTENSION [None]
  - FOOT FRACTURE [None]
  - SPINAL DISORDER [None]
  - DENTAL CARIES [None]
  - DYSPEPSIA [None]
  - POSTMENOPAUSAL HAEMORRHAGE [None]
  - GLUCOSE TOLERANCE TEST ABNORMAL [None]
  - SPEECH DISORDER [None]
  - ADVERSE DRUG REACTION [None]
  - BRONCHITIS [None]
  - DYSURIA [None]
  - MUSCULOSKELETAL CHEST PAIN [None]
  - HYPERCHOLESTEROLAEMIA [None]
  - ARTHRALGIA [None]
  - TOOTH LOSS [None]
  - RADICULOPATHY [None]
  - HAEMORRHOIDS [None]
  - HAND FRACTURE [None]
  - OVERDOSE [None]
  - DEPRESSION [None]
  - BLOOD PRESSURE INCREASED [None]
  - BONE DENSITY DECREASED [None]
  - DYSPNOEA [None]
  - DIARRHOEA [None]
  - MUCOUS MEMBRANE DISORDER [None]
  - LOBAR PNEUMONIA [None]
  - IRON DEFICIENCY ANAEMIA [None]
  - HYPERTONIC BLADDER [None]
  - BLOOD URINE [None]
  - OSTEOARTHRITIS [None]
  - URINARY TRACT INFECTION [None]
  - TOOTH FRACTURE [None]
  - SLEEP APNOEA SYNDROME [None]
  - FEELING ABNORMAL [None]
